FAERS Safety Report 11232490 (Version 2)
Quarter: 2016Q4

REPORT INFORMATION
  Report Type: Spontaneous
  Country: IN (occurrence: IN)
  Receive Date: 20150701
  Receipt Date: 20161003
  Transmission Date: 20170206
  Serious: Yes (Death, Other)
  Sender: FDA-Public Use
  Company Number: IN-BAYER-2015-364650

PATIENT
  Age: 15 Month
  Sex: Female

DRUGS (3)
  1. ACETYLSALICYLIC ACID (} 100 MG) [Suspect]
     Active Substance: ASPIRIN
     Indication: KAWASAKI^S DISEASE
     Dosage: 3-5 MG/KG/DAY LATER
  2. IMMUNOGLOBULIN [Suspect]
     Active Substance: HUMAN IMMUNOGLOBULIN G
     Indication: KAWASAKI^S DISEASE
     Dosage: 2 G/KG
     Route: 042
  3. ACETYLSALICYLIC ACID (} 100 MG) [Suspect]
     Active Substance: ASPIRIN
     Indication: KAWASAKI^S DISEASE
     Dosage: 50-80 MG/KG/DAY INITIALLY

REACTIONS (12)
  - Haemorrhage intracranial [Fatal]
  - Pyrexia [None]
  - Skin haemorrhage [None]
  - Coagulopathy [Fatal]
  - Mucosal haemorrhage [None]
  - Depressed level of consciousness [None]
  - Sepsis [None]
  - Thrombocytopenia [None]
  - Off label use [None]
  - Pancytopenia [None]
  - Shock [None]
  - Diarrhoea [None]

NARRATIVE: CASE EVENT DATE: 201006
